FAERS Safety Report 5767866-4 (Version None)
Quarter: 2008Q2

REPORT INFORMATION
  Report Type: 
  Country: None (occurrence: None)
  Receive Date: 20080612
  Receipt Date: 20080530
  Transmission Date: 20081010
  Serious: Yes (Other)
  Sender: FDA-Public Use
  Company Number: CN-ROCHE-567908

PATIENT
  Age: 81 Year
  Sex: Male
  Weight: 50 kg

DRUGS (1)
  1. XELODA [Suspect]
     Indication: RECTAL CANCER
     Route: 048
     Dates: start: 20080401

REACTIONS (2)
  - METASTASIS [None]
  - NEOPLASM PROGRESSION [None]
